FAERS Safety Report 8511455-5 (Version None)
Quarter: 2012Q3

REPORT INFORMATION
  Report Type: 
  Country: None (occurrence: None)
  Receive Date: 20120716
  Receipt Date: 20120711
  Transmission Date: 20120928
  Serious: No
  Sender: FDA-Public Use
  Company Number: US-PFIZER INC-2012131036

PATIENT
  Sex: Female

DRUGS (1)
  1. ADVIL LIQUI-GELS [Suspect]
     Dosage: 300 MG, UNK
     Route: 048

REACTIONS (5)
  - FOREIGN BODY [None]
  - FEELING ABNORMAL [None]
  - DYSPEPSIA [None]
  - PRODUCT PHYSICAL ISSUE [None]
  - PAIN [None]
